FAERS Safety Report 19007053 (Version 1)
Quarter: 2021Q1

REPORT INFORMATION
  Report Type: Spontaneous
  Country: US (occurrence: US)
  Receive Date: 20210313
  Receipt Date: 20210313
  Transmission Date: 20210420
  Serious: No
  Sender: FDA-Public Use
  Company Number: None

PATIENT
  Age: 83 Year
  Sex: Male
  Weight: 67.9 kg

DRUGS (18)
  1. ACETAMINOPHEN PM EX ST [Concomitant]
  2. ASPIRIN 81 [Concomitant]
     Active Substance: ASPIRIN
  3. CRESTOR [Concomitant]
     Active Substance: ROSUVASTATIN CALCIUM
  4. FERROUS SULFATE. [Concomitant]
     Active Substance: FERROUS SULFATE
  5. LUPRON DEPOT (6?MONTH) [Concomitant]
  6. VICTOZA [Concomitant]
     Active Substance: LIRAGLUTIDE
  7. HYDRALAZINE HCL [Concomitant]
     Active Substance: HYDRALAZINE HYDROCHLORIDE
  8. PANTOPRAZOLE SODIUM. [Concomitant]
     Active Substance: PANTOPRAZOLE SODIUM
  9. ALLERGY 24HOUR INDOOR/OUTDOOR [Concomitant]
  10. ARANESP (ALBUMIN FREE) [Concomitant]
  11. CALCIUM + D3 [Concomitant]
     Active Substance: CALCIUM\CHOLECALCIFEROL
  12. HYDROXYZINE HCL [Concomitant]
     Active Substance: HYDROXYZINE HYDROCHLORIDE
  13. TAMSULOSIN HCL [Concomitant]
     Active Substance: TAMSULOSIN HYDROCHLORIDE
  14. ABIRATERONE. [Suspect]
     Active Substance: ABIRATERONE ACETATE
     Indication: PROSTATE CANCER
     Route: 048
     Dates: start: 20210217, end: 20210301
  15. METOPROLOL TARTRATE. [Concomitant]
     Active Substance: METOPROLOL TARTRATE
  16. METFORMIN HCL [Concomitant]
     Active Substance: METFORMIN HYDROCHLORIDE
  17. PREDNISONE. [Suspect]
     Active Substance: PREDNISONE
     Indication: PROSTATE CANCER
     Route: 048
     Dates: start: 20210217, end: 20210301
  18. FINASTERIDE. [Concomitant]
     Active Substance: FINASTERIDE

REACTIONS (1)
  - Disease progression [None]

NARRATIVE: CASE EVENT DATE: 20210301
